FAERS Safety Report 4872518-9 (Version None)
Quarter: 2005Q4

REPORT INFORMATION
  Report Type: 
  Country: None (occurrence: None)
  Receive Date: 20051230
  Receipt Date: 20051230
  Transmission Date: 20060501
  Serious: Yes (Other)
  Sender: FDA-Public Use
  Company Number: None

PATIENT
  Age: 48 Year
  Sex: Male
  Weight: 103.3 kg

DRUGS (1)
  1. GENTAMICIN [Suspect]
     Indication: ABDOMINAL INFECTION
     Dosage: 255MG  EVERY 24 HOURS  IV  (SINGLE DOSE GIVEN)
     Route: 042
     Dates: start: 20051225, end: 20051225

REACTIONS (5)
  - BODY TEMPERATURE INCREASED [None]
  - CHILLS [None]
  - HYPOTENSION [None]
  - INFUSION RELATED REACTION [None]
  - TREMOR [None]
